FAERS Safety Report 11905972 (Version 1)
Quarter: 2016Q1

REPORT INFORMATION
  Report Type: Spontaneous
  Country: US (occurrence: None)
  Receive Date: 20160108
  Receipt Date: 20160108
  Transmission Date: 20160526
  Serious: No
  Sender: FDA-Public Use
  Company Number: None

PATIENT
  Age: 42 Year
  Sex: Male
  Weight: 86.5 kg

DRUGS (8)
  1. GANCICLOVIR IV [Concomitant]
  2. METOCLOPRAMIDE IV INJECTION [Concomitant]
     Active Substance: METOCLOPRAMIDE
  3. NORMAL SALINE [Concomitant]
     Active Substance: SODIUM CHLORIDE
  4. TACROLIMUS IV [Concomitant]
  5. POSACONAZOLE [Suspect]
     Active Substance: POSACONAZOLE
     Indication: ANTIFUNGAL PROPHYLAXIS
     Route: 042
  6. MEROPENEM. [Suspect]
     Active Substance: MEROPENEM
     Indication: ESCHERICHIA INFECTION
     Route: 042
  7. MAGNESIUM IV [Concomitant]
  8. POTASSIUM CHLORIDE IV [Concomitant]

REACTIONS (1)
  - Device occlusion [None]

NARRATIVE: CASE EVENT DATE: 20151208
